FAERS Safety Report 11133080 (Version 2)
Quarter: 2015Q3

REPORT INFORMATION
  Report Type: Spontaneous
  Country: CA (occurrence: CA)
  Receive Date: 20150522
  Receipt Date: 20150702
  Transmission Date: 20151125
  Serious: Yes (Other)
  Sender: FDA-Public Use
  Company Number: CA-ALLERGAN-1508840US

PATIENT
  Age: 38 Year
  Sex: Female

DRUGS (2)
  1. REFRESH OPTIVE FUSION [Concomitant]
     Indication: DRY EYE
     Route: 047
  2. RESTASIS [Suspect]
     Active Substance: CYCLOSPORINE
     Indication: DRY EYE
     Dosage: 1 DROP INTO EACH EYE TWICE DAILY
     Route: 047
     Dates: start: 20150415

REACTIONS (5)
  - Retinal detachment [Not Recovered/Not Resolved]
  - Ocular hyperaemia [Recovered/Resolved]
  - Sinus congestion [Recovered/Resolved]
  - Eye pruritus [Recovered/Resolved]
  - Ear discomfort [Recovered/Resolved]
